FAERS Safety Report 10311772 (Version 1)
Quarter: 2014Q3

REPORT INFORMATION
  Report Type: Spontaneous
  Country: US (occurrence: US)
  Receive Date: 20140717
  Receipt Date: 20140717
  Transmission Date: 20150326
  Serious: No
  Sender: FDA-Public Use
  Company Number: US-BANPHARM-20142635

PATIENT
  Sex: Female

DRUGS (1)
  1. AMANTADINE HYDROCHLORIDE CAPSULES 100 MG [Suspect]
     Active Substance: AMANTADINE HYDROCHLORIDE
     Route: 048

REACTIONS (1)
  - Coeliac disease [Unknown]
